FAERS Safety Report 13761413 (Version 3)
Quarter: 2017Q3

REPORT INFORMATION
  Report Type: Spontaneous
  Country: US (occurrence: US)
  Receive Date: 20170717
  Receipt Date: 20170920
  Transmission Date: 20171127
  Serious: Yes (Other)
  Sender: FDA-Public Use
  Company Number: US-009507513-1707USA004308

PATIENT

DRUGS (1)
  1. KEYTRUDA [Suspect]
     Active Substance: PEMBROLIZUMAB
     Indication: SQUAMOUS CELL CARCINOMA
     Dosage: 2 MG/KG, Q3W

REACTIONS (3)
  - Fatigue [Unknown]
  - Hip fracture [Recovered/Resolved]
  - Endocrine disorder [Recovered/Resolved]
